FAERS Safety Report 24656333 (Version 1)
Quarter: 2024Q4

REPORT INFORMATION
  Report Type: Spontaneous
  Country: US (occurrence: US)
  Receive Date: 20241124
  Receipt Date: 20241124
  Transmission Date: 20250114
  Serious: Yes (Hospitalization)
  Sender: CSL BEHRING
  Company Number: US-BEH-2024184886

PATIENT
  Sex: Male

DRUGS (1)
  1. HIZENTRA [Suspect]
     Active Substance: HUMAN IMMUNOGLOBULIN G
     Indication: Hypogammaglobulinaemia
     Dosage: 10 G, QW (PRODUCT STRENTH 0.2 GM/ML)
     Route: 058
     Dates: start: 202110

REACTIONS (3)
  - Respiratory disorder [Unknown]
  - Loss of consciousness [Unknown]
  - Oxygen saturation decreased [Unknown]
